FAERS Safety Report 8924819 (Version 2)
Quarter: 2014Q2

REPORT INFORMATION
  Report Type: Spontaneous
  Country: CH (occurrence: CH)
  Receive Date: 20121126
  Receipt Date: 20131018
  Transmission Date: 20141212
  Serious: Yes (Hospitalization, Other)
  Sender: FDA-Public Use
  Company Number: CH-PFIZER INC-2012293968

PATIENT
  Age: 69 Year
  Sex: Male

DRUGS (16)
  1. VANCOMYCIN HCL [Suspect]
     Indication: PNEUMONIA BACTERIAL
     Dosage: 1 G, 1X/DAY
     Route: 040
     Dates: start: 20121001, end: 20121001
  2. AUGMENTIN [Suspect]
     Indication: PNEUMONIA BACTERIAL
     Dosage: 1.2 G, 1X/DAY
     Route: 040
     Dates: start: 20121005, end: 20121009
  3. TAVANIC [Suspect]
     Indication: PNEUMONIA BACTERIAL
     Dosage: 500 MG, 1X/DAY
     Route: 048
     Dates: start: 20121003, end: 20121005
  4. INVANZ [Suspect]
     Dosage: 1 GRAMS,UNK
     Route: 042
     Dates: start: 20121001, end: 20121002
  5. INSULIN [Concomitant]
     Dosage: UNK
  6. ASPIRIN [Concomitant]
     Dosage: UNK
  7. CANDESARTAN CILEXETIL [Concomitant]
     Dosage: UNK
  8. CARVEDILOL [Concomitant]
     Dosage: UNK
  9. NIFEDIPINE [Concomitant]
     Dosage: UNK
  10. DAFALGAN [Concomitant]
     Dosage: UNK
  11. TORASEMIDE [Concomitant]
     Dosage: UNK
  12. CALCIUM ACETATE [Concomitant]
     Dosage: UNK
  13. SEVELAMER HYDROCHLORIDE [Concomitant]
     Dosage: UNK
  14. COLECALCIFEROL [Concomitant]
     Dosage: UNK
  15. INSULATARD-X [Concomitant]
  16. PURSANA [Concomitant]

REACTIONS (4)
  - Confusional state [Recovered/Resolved]
  - Hallucination [Recovered/Resolved]
  - Delirium [Recovered/Resolved]
  - Muscle contractions involuntary [Recovered/Resolved]
